FAERS Safety Report 5889276-1 (Version None)
Quarter: 2008Q3

REPORT INFORMATION
  Report Type: 
  Country: None (occurrence: None)
  Receive Date: 20080917
  Receipt Date: 20080903
  Transmission Date: 20090109
  Serious: Yes (Hospitalization)
  Sender: FDA-Public Use
  Company Number: AZAUS200800226

PATIENT
  Age: 63 Year
  Sex: Female
  Weight: 57 kg

DRUGS (1)
  1. VIDAZA [Suspect]
     Indication: MYELODYSPLASTIC SYNDROME
     Dosage: (100 MG/M2, DAILY X 5 DAYS), INTRAVENOUS
     Route: 042
     Dates: start: 20080602, end: 20080606

REACTIONS (14)
  - ANAL ABSCESS [None]
  - ANAL FISTULA [None]
  - BLOOD PRESSURE DIASTOLIC DECREASED [None]
  - BODY TEMPERATURE DECREASED [None]
  - CONFUSIONAL STATE [None]
  - DEHYDRATION [None]
  - FEBRILE NEUTROPENIA [None]
  - GENERAL PHYSICAL HEALTH DETERIORATION [None]
  - HAEMOGLOBIN DECREASED [None]
  - IMPAIRED DRIVING ABILITY [None]
  - INFECTION [None]
  - PLATELET COUNT DECREASED [None]
  - TACHYCARDIA [None]
  - WHITE BLOOD CELL COUNT DECREASED [None]
